FAERS Safety Report 7471218-9 (Version None)
Quarter: 2011Q2

REPORT INFORMATION
  Report Type: 
  Country: None (occurrence: None)
  Receive Date: 20110510
  Receipt Date: 20110429
  Transmission Date: 20111010
  Serious: Yes (Other)
  Sender: FDA-Public Use
  Company Number: PHHY2011US24990

PATIENT
  Sex: Male

DRUGS (4)
  1. GLEEVEC [Suspect]
     Indication: CHRONIC MYELOID LEUKAEMIA
     Dosage: 400 MG, DAILY
     Route: 048
     Dates: start: 20100901
  2. OMEPRAZOLE [Concomitant]
     Dosage: 20 MG
     Route: 048
  3. LEVOTHYROXINE SODIUM [Concomitant]
     Dosage: 50 MG
     Route: 048
  4. GLEEVEC [Suspect]
     Dosage: 400 MG, QD
     Route: 048
     Dates: start: 20110218

REACTIONS (3)
  - DYSPHAGIA [None]
  - GASTROINTESTINAL DISORDER [None]
  - DIARRHOEA [None]
